FAERS Safety Report 6484368-0 (Version None)
Quarter: 2009Q4

REPORT INFORMATION
  Report Type: 
  Country: None (occurrence: None)
  Receive Date: 20091209
  Receipt Date: 20091127
  Transmission Date: 20100525
  Serious: Yes (Hospitalization)
  Sender: FDA-Public Use
  Company Number: JP-JNJFOC-20091200124

PATIENT
  Age: 80 Year
  Sex: Male

DRUGS (3)
  1. FINIBAX [Suspect]
     Indication: PNEUMONIA
     Route: 041
  2. VANCOMYCIN [Suspect]
     Indication: PNEUMONIA
     Route: 041
  3. ZOSYN [Suspect]
     Indication: PNEUMONIA
     Route: 041

REACTIONS (1)
  - RENAL IMPAIRMENT [None]
